FAERS Safety Report 11631551 (Version 13)
Quarter: 2018Q3

REPORT INFORMATION
  Report Type: Report from Study
  Country: CA (occurrence: CA)
  Receive Date: 20151015
  Receipt Date: 20180726
  Transmission Date: 20181010
  Serious: Yes (Death, Hospitalization, Other)
  Sender: FDA-Public Use
  Company Number: CA-ROCHE-1635698

PATIENT
  Age: 73 Year
  Sex: Male

DRUGS (30)
  1. FUROSEMIDE. [Concomitant]
     Active Substance: FUROSEMIDE
  2. TRAVATAN [Concomitant]
     Active Substance: TRAVOPROST
  3. NYSTATIN. [Concomitant]
     Active Substance: NYSTATIN
  4. NITRO SPRAY (NO OTHER INFORMATION IS AVAILABLE) [Concomitant]
  5. ESBRIET [Suspect]
     Active Substance: PIRFENIDONE
     Indication: IDIOPATHIC PULMONARY FIBROSIS
     Route: 048
     Dates: start: 20150909
  6. SPIRIVA [Concomitant]
     Active Substance: TIOTROPIUM BROMIDE MONOHYDRATE
  7. DIAMICRON [Concomitant]
     Active Substance: GLICLAZIDE
  8. ALLOPURINOL. [Concomitant]
     Active Substance: ALLOPURINOL
  9. ELTROXIN [Concomitant]
     Active Substance: LEVOTHYROXINE
  10. APO?K [Concomitant]
     Active Substance: POTASSIUM CHLORIDE
  11. COLCHICINE. [Concomitant]
     Active Substance: COLCHICINE
  12. OXYCODONE [Concomitant]
     Active Substance: OXYCODONE
  13. ESBRIET [Suspect]
     Active Substance: PIRFENIDONE
     Route: 048
     Dates: start: 20150916
  14. ESBRIET [Suspect]
     Active Substance: PIRFENIDONE
     Route: 048
     Dates: start: 20150923
  15. VENTOLIN [Concomitant]
     Active Substance: ALBUTEROL SULFATE
  16. OXYGEN. [Concomitant]
     Active Substance: OXYGEN
  17. PANTOLOC [Concomitant]
     Active Substance: PANTOPRAZOLE SODIUM
  18. ATENOLOL. [Concomitant]
     Active Substance: ATENOLOL
  19. PREDNISONE. [Concomitant]
     Active Substance: PREDNISONE
     Route: 065
  20. BREO (UNK INGREDIENTS) [Concomitant]
  21. TUDORZA PRESSAIR [Concomitant]
     Active Substance: ACLIDINIUM BROMIDE
  22. ASA [Concomitant]
     Active Substance: ASPIRIN
  23. LORAZEPAM. [Concomitant]
     Active Substance: LORAZEPAM
  24. BETADERM (BETAMETHASONE VALERATE) [Concomitant]
  25. FOLIC ACID. [Concomitant]
     Active Substance: FOLIC ACID
  26. SENOKOT [Concomitant]
     Active Substance: SENNOSIDES
  27. LACTULOSE. [Concomitant]
     Active Substance: LACTULOSE
  28. PERCOCET [Concomitant]
     Active Substance: ACETAMINOPHEN\OXYCODONE HYDROCHLORIDE
  29. SYMBICORT [Concomitant]
     Active Substance: BUDESONIDE\FORMOTEROL FUMARATE DIHYDRATE
  30. MONOCOR [Concomitant]
     Active Substance: BISOPROLOL FUMARATE

REACTIONS (16)
  - Myocardial infarction [Fatal]
  - Fatigue [Not Recovered/Not Resolved]
  - Anxiety [Not Recovered/Not Resolved]
  - Crying [Not Recovered/Not Resolved]
  - Abdominal discomfort [Recovered/Resolved]
  - Dizziness [Unknown]
  - Abdominal abscess [Not Recovered/Not Resolved]
  - Abdominal discomfort [Unknown]
  - Decreased appetite [Not Recovered/Not Resolved]
  - Dyspnoea [Unknown]
  - Stress [Not Recovered/Not Resolved]
  - Depressed mood [Not Recovered/Not Resolved]
  - Pruritus [Not Recovered/Not Resolved]
  - Sinus congestion [Not Recovered/Not Resolved]
  - Lower respiratory tract infection [Recovered/Resolved]
  - Cardiac disorder [Unknown]

NARRATIVE: CASE EVENT DATE: 20150923
